FAERS Safety Report 5612382-3 (Version None)
Quarter: 2008Q1

REPORT INFORMATION
  Report Type: 
  Country: None (occurrence: None)
  Receive Date: 20080204
  Receipt Date: 20080122
  Transmission Date: 20080703
  Serious: Yes (Other)
  Sender: FDA-Public Use
  Company Number: US-MERCK-0706USA00690

PATIENT
  Age: 44 Year
  Sex: Male

DRUGS (2)
  1. FOSAMAX [Suspect]
     Indication: OSTEOPOROSIS
     Route: 048
     Dates: start: 20050105
  2. CORTICOSTEROIDS (UNSPECIFIED) [Concomitant]
     Route: 065
     Dates: start: 19860101

REACTIONS (15)
  - ABSCESS [None]
  - BLISTER [None]
  - DEAFNESS [None]
  - DENTAL CARIES [None]
  - DIVERTICULITIS [None]
  - ECZEMA [None]
  - FOLLICULITIS [None]
  - GINGIVAL BLEEDING [None]
  - IMPAIRED HEALING [None]
  - ORAL INFECTION [None]
  - OSTEOARTHRITIS [None]
  - PHARYNGITIS [None]
  - RECTAL HAEMORRHAGE [None]
  - SPINAL OSTEOARTHRITIS [None]
  - TOOTH LOSS [None]
